FAERS Safety Report 13302414 (Version 1)
Quarter: 2017Q1

REPORT INFORMATION
  Report Type: Report from Study
  Country: AT (occurrence: AT)
  Receive Date: 20170307
  Receipt Date: 20170307
  Transmission Date: 20170428
  Serious: Yes (Hospitalization)
  Sender: FDA-Public Use
  Company Number: AT-PFIZER INC-2017008529

PATIENT
  Age: 75 Year
  Sex: Male
  Weight: 76 kg

DRUGS (20)
  1. AMLODIPINE [Concomitant]
     Active Substance: AMLODIPINE BESYLATE
     Indication: HYPERTENSION
     Dosage: 10 MG, 1X/DAY, 1-0-0
     Dates: start: 201106
  2. AMARYL [Concomitant]
     Active Substance: GLIMEPIRIDE
     Indication: TYPE 2 DIABETES MELLITUS
     Dosage: UNK UNK, 1X/DAY
     Dates: start: 201601
  3. PANTOLOC [Concomitant]
     Active Substance: PANTOPRAZOLE SODIUM
     Indication: PROPHYLAXIS AGAINST GASTROINTESTINAL ULCER
     Dosage: UNK UNK, 1X/DAY
     Dates: start: 201601
  4. INSPRA [Concomitant]
     Active Substance: EPLERENONE
     Indication: HYPERTENSION
     Dosage: UNK UNK, 1X/DAY
     Dates: start: 201601
  5. ADALAT EINS [Concomitant]
     Indication: HYPERTENSION
     Dosage: 30 MG, 1X/DAY
     Dates: start: 2015, end: 201601
  6. EUTHYROX [Concomitant]
     Active Substance: LEVOTHYROXINE SODIUM
     Indication: HYPOTHYROIDISM
     Dosage: 0.125 MG, 1X/DAY, 1-0-0
     Dates: start: 201512
  7. FOSITENS [Concomitant]
     Active Substance: FOSINOPRIL SODIUM
     Indication: HYPERTENSION
     Dosage: UNK UNK, 1X/DAY
     Dates: start: 201601
  8. ALNA RETARD [Concomitant]
     Active Substance: TAMSULOSIN HYDROCHLORIDE
     Dosage: UNK, 1-0-0.5
     Dates: start: 2015
  9. MARCUMAR [Concomitant]
     Active Substance: PHENPROCOUMON
     Indication: ANTICOAGULANT THERAPY
     Dosage: UNK
     Dates: start: 2015
  10. SUNITINIB MALATE. [Suspect]
     Active Substance: SUNITINIB MALATE
     Indication: METASTATIC RENAL CELL CARCINOMA
     Dosage: 50 MG, 1X/DAY
     Dates: start: 201512
  11. METFORMIN [Concomitant]
     Active Substance: METFORMIN HYDROCHLORIDE
     Indication: DIABETES MELLITUS
     Dosage: 1 DF, 2X/DAY
     Dates: end: 201601
  12. CANDESARTAN CILEXETIL AND HYDROCHLOROTHIAZIDE [Concomitant]
     Active Substance: CANDESARTAN CILEXETIL\HYDROCHLOROTHIAZIDE
     Indication: HYPERTENSION
     Dosage: 1 DF, 2X/DAY
     Dates: start: 2015, end: 201601
  13. SORTIS [Concomitant]
     Active Substance: ATORVASTATIN
     Indication: HYPERLIPIDAEMIA
     Dosage: 40 MG, 1X/DAY
     Dates: end: 201601
  14. AMPHO MORONAL [Concomitant]
     Active Substance: AMPHOTERICIN B
     Indication: FUNGAL INFECTION
     Dosage: UNK UNK, 2X/DAY
     Dates: start: 201602, end: 201602
  15. TAMIFLU [Suspect]
     Active Substance: OSELTAMIVIR PHOSPHATE
     Dosage: 75 MG, 1X/DAY
     Dates: start: 201601, end: 201601
  16. ITERIUM [Concomitant]
     Active Substance: RILMENIDINE
     Indication: HYPERTENSION
     Dosage: 1 MG, 1X/DAY
  17. PROSCAR [Concomitant]
     Active Substance: FINASTERIDE
     Dosage: 1 DF, 1X/DAY
  18. LASIX [Concomitant]
     Active Substance: FUROSEMIDE
     Indication: PROPHYLAXIS
     Dosage: 20 MG, 1X/DAY
  19. AGOPTON [Concomitant]
     Active Substance: LANSOPRAZOLE
     Indication: PROPHYLAXIS AGAINST GASTROINTESTINAL ULCER
     Dosage: 1 DF, 1X/DAY
     Dates: start: 2015, end: 201601
  20. DILATREND [Concomitant]
     Active Substance: CARVEDILOL
     Indication: HYPERTENSION
     Dosage: 25 MG-0 -12.5 MG
     Dates: start: 2015

REACTIONS (1)
  - Influenza [Recovered/Resolved]

NARRATIVE: CASE EVENT DATE: 20160122
